FAERS Safety Report 7953757-7 (Version None)
Quarter: 2011Q4

REPORT INFORMATION
  Report Type: 
  Country: None (occurrence: None)
  Receive Date: 20111202
  Receipt Date: 20111128
  Transmission Date: 20120403
  Serious: No
  Sender: FDA-Public Use
  Company Number: US-PFIZER INC-2011290560

PATIENT
  Sex: Male

DRUGS (1)
  1. DIFLUCAN [Suspect]
     Dosage: 400 MG, UNK
     Dates: start: 20110101

REACTIONS (3)
  - GASTROINTESTINAL PAIN [None]
  - ARRHYTHMIA [None]
  - PALPITATIONS [None]
